FAERS Safety Report 6172222-3 (Version None)
Quarter: 2009Q2

REPORT INFORMATION
  Report Type: 
  Country: None (occurrence: None)
  Receive Date: 20090429
  Receipt Date: 20090421
  Transmission Date: 20091009
  Serious: No
  Sender: FDA-Public Use
  Company Number: A0764624A

PATIENT
  Age: 52 Year
  Sex: Female
  Weight: 86.4 kg

DRUGS (5)
  1. ONDANSETRON [Suspect]
     Indication: NAUSEA
     Dosage: 8MG AS REQUIRED
     Route: 048
     Dates: start: 20081217, end: 20090101
  2. ATIVAN [Concomitant]
     Indication: ANXIETY
     Dosage: 1MG AS REQUIRED
  3. TEMAZEPAM [Concomitant]
     Indication: SLEEP DISORDER
     Dosage: 30MG ALTERNATE DAYS
  4. AMBIEN [Concomitant]
     Indication: SLEEP DISORDER
     Dosage: 10MG ALTERNATE DAYS
  5. CITALOPRAM [Concomitant]
     Dosage: 60MG IN THE MORNING

REACTIONS (2)
  - DRUG INEFFECTIVE [None]
  - PRODUCT QUALITY ISSUE [None]
